FAERS Safety Report 20565326 (Version 1)
Quarter: 2022Q1

REPORT INFORMATION
  Report Type: Spontaneous
  Country: CA (occurrence: CA)
  Receive Date: 20220308
  Receipt Date: 20220308
  Transmission Date: 20220424
  Serious: Yes (Hospitalization)
  Sender: FDA-Public Use
  Company Number: None

PATIENT
  Age: 72 Year
  Sex: Male

DRUGS (7)
  1. FLUOROURACIL [Suspect]
     Active Substance: FLUOROURACIL
     Indication: Product used for unknown indication
     Dosage: INJECTION
     Route: 042
  2. CANDESARTAN [Concomitant]
     Active Substance: CANDESARTAN
  3. DECADRON [Concomitant]
     Active Substance: DEXAMETHASONE
  4. MS CONTIN [Concomitant]
     Active Substance: MORPHINE SULFATE
  5. PANTOPRAZOLE SODIUM [Concomitant]
     Active Substance: PANTOPRAZOLE SODIUM
  6. PROCHLORPERAZINE [Concomitant]
     Active Substance: PROCHLORPERAZINE
  7. TERAZOSIN [Concomitant]
     Active Substance: TERAZOSIN HYDROCHLORIDE

REACTIONS (6)
  - Asthenia [Unknown]
  - Ataxia [Unknown]
  - Balance disorder [Unknown]
  - Neuropathy peripheral [Unknown]
  - Polyneuropathy [Unknown]
  - Sensory ganglionitis [Unknown]
